FAERS Safety Report 4536916-5 (Version None)
Quarter: 2004Q4

REPORT INFORMATION
  Report Type: 
  Country: None (occurrence: None)
  Receive Date: 20041223
  Receipt Date: 20030918
  Transmission Date: 20050328
  Serious: Yes (Hospitalization)
  Sender: FDA-Public Use
  Company Number: DE-GLAXOSMITHKLINE-D0041971A

PATIENT
  Age: 73 Year
  Sex: Male
  Weight: 91 kg

DRUGS (2)
  1. AVODART [Suspect]
     Route: 048
  2. AZUPAMIL [Suspect]
     Indication: HYPERTENSION
     Dosage: 1U TWICE PER DAY
     Route: 065

REACTIONS (2)
  - BLOOD PRESSURE SYSTOLIC INCREASED [None]
  - RETINAL HAEMORRHAGE [None]
